FAERS Safety Report 13539322 (Version 1)
Quarter: 2017Q2

REPORT INFORMATION
  Report Type: Spontaneous
  Country: US (occurrence: US)
  Receive Date: 20170511
  Receipt Date: 20170511
  Transmission Date: 20170830
  Serious: Yes (Death, Hospitalization)
  Sender: FDA-Public Use
  Company Number: None

PATIENT
  Age: 65 Year
  Sex: Female

DRUGS (1)
  1. REVLIMID [Suspect]
     Active Substance: LENALIDOMIDE
     Indication: CHRONIC MYELOID LEUKAEMIA
     Dosage: 5MG QOD X21D/28D ORAL
     Route: 048
     Dates: start: 201205, end: 201307

REACTIONS (4)
  - Renal impairment [None]
  - Haemodialysis [None]
  - Cardiac failure [None]
  - Confusional state [None]

NARRATIVE: CASE EVENT DATE: 20140801
